FAERS Safety Report 9620312 (Version 1)
Quarter: 2013Q4

REPORT INFORMATION
  Report Type: Spontaneous
  Country: US (occurrence: US)
  Receive Date: 20131014
  Receipt Date: 20131014
  Transmission Date: 20140711
  Serious: No
  Sender: FDA-Public Use
  Company Number: US-ALLERGAN-1301110US

PATIENT
  Age: 81 Year
  Sex: Female

DRUGS (6)
  1. ALPHAGAN [Suspect]
     Indication: GLAUCOMA
     Route: 047
  2. SANDOSTATIN                        /00821001/ [Concomitant]
     Indication: HEPATIC CANCER
     Dosage: UNK UNK, Q MONTH
     Route: 030
  3. LOSARTAN [Concomitant]
     Indication: HYPERTENSION
     Dosage: 100 MG, QD
     Route: 048
  4. ISRADIPINE [Concomitant]
     Indication: HYPERTENSION
     Dosage: 2.5 MG, QAM
     Route: 048
  5. ISRADIPINE [Concomitant]
     Dosage: 5 MG, QPM
     Route: 048
  6. IOPIDINE                           /00948501/ [Concomitant]
     Indication: PRODUCT USED FOR UNKNOWN INDICATION
     Dosage: 2 GTT, QD
     Route: 047

REACTIONS (1)
  - Drug ineffective [Unknown]
